FAERS Safety Report 15851098 (Version 2)
Quarter: 2025Q2

REPORT INFORMATION
  Report Type: Report from Study
  Country: ES (occurrence: ES)
  Receive Date: 20190122
  Receipt Date: 20250530
  Transmission Date: 20250717
  Serious: Yes (Other)
  Sender: AUROBINDO
  Company Number: ES-AUROBINDO-AUR-APL-2019-001651

PATIENT

DRUGS (1)
  1. LEVETIRACETAM [Suspect]
     Active Substance: LEVETIRACETAM
     Indication: Seizure
     Route: 065

REACTIONS (7)
  - Seizure [Unknown]
  - Mental disorder [Unknown]
  - Depression [Unknown]
  - Irritability [Unknown]
  - Adverse event [Unknown]
  - Drug intolerance [Unknown]
  - Drug ineffective [Unknown]
